FAERS Safety Report 6097829-3 (Version None)
Quarter: 2009Q1

REPORT INFORMATION
  Report Type: 
  Country: None (occurrence: None)
  Receive Date: 20090225
  Receipt Date: 20090211
  Transmission Date: 20090719
  Serious: Yes (Other)
  Sender: FDA-Public Use
  Company Number: 2009AL000906

PATIENT
  Age: 17 Year
  Sex: Male

DRUGS (12)
  1. TRAMADOL HYDROCHLORIDE [Suspect]
     Indication: ANAESTHESIA
     Dosage: 100 MG; IV
     Route: 042
     Dates: start: 20090122, end: 20090122
  2. ONDANSETRON [Concomitant]
  3. PROPOFOL [Concomitant]
  4. FENTANYL [Concomitant]
  5. SEVOFLURANE [Concomitant]
  6. NITROUS OXIDE [Concomitant]
  7. OXYGEN [Concomitant]
  8. PANCURONIUM [Concomitant]
  9. GLYCOPYROLATE [Concomitant]
  10. NEOSTIGMINE [Concomitant]
  11. MIDAZOLAM HCL [Concomitant]
  12. PMS PROCYCLIDINE [Concomitant]

REACTIONS (2)
  - BLINDNESS TRANSIENT [None]
  - DYSTONIA [None]
